FAERS Safety Report 6337487-3 (Version None)
Quarter: 2009Q3

REPORT INFORMATION
  Report Type: 
  Country: None (occurrence: None)
  Receive Date: 20090902
  Receipt Date: 20090831
  Transmission Date: 20100115
  Serious: Yes (Other)
  Sender: FDA-Public Use
  Company Number: IT-TEVA-207529ISR

PATIENT
  Age: 81 Year
  Sex: Female

DRUGS (2)
  1. TICLOPIDINE HCL [Suspect]
  2. NADROPARIN CALCIUM [Interacting]

REACTIONS (2)
  - DRUG INTERACTION [None]
  - INTRA-ABDOMINAL HAEMATOMA [None]
